FAERS Safety Report 11871317 (Version 2)
Quarter: 2016Q1

REPORT INFORMATION
  Report Type: Report from Study
  Country: DE (occurrence: DE)
  Receive Date: 20151228
  Receipt Date: 20160115
  Transmission Date: 20160526
  Serious: Yes (Death)
  Sender: FDA-Public Use
  Company Number: DE-ABBVIE-15P-062-1527757-00

PATIENT
  Sex: Male
  Weight: 60 kg

DRUGS (1)
  1. DUODOPA [Suspect]
     Active Substance: CARBIDOPA\LEVODOPA
     Indication: PARKINSON^S DISEASE
     Dosage: 274 MG
     Route: 050
     Dates: start: 20151215, end: 20151222

REACTIONS (2)
  - Hypoglycaemia [Fatal]
  - Vomiting [Fatal]

NARRATIVE: CASE EVENT DATE: 20151222
